FAERS Safety Report 17408955 (Version 1)
Quarter: 2020Q1

REPORT INFORMATION
  Report Type: Report from Study
  Country: ZA (occurrence: ZA)
  Receive Date: 20200212
  Receipt Date: 20200212
  Transmission Date: 20200409
  Serious: Yes (Death)
  Sender: FDA-Public Use
  Company Number: ZA-ASTRAZENECA-2020SE20897

PATIENT
  Sex: Female

DRUGS (3)
  1. SYNAGIS [Suspect]
     Active Substance: PALIVIZUMAB
     Indication: LUNG DISORDER
     Dosage: 15.0MG/KG UNKNOWN
     Route: 050
     Dates: start: 201905
  2. SYNAGIS [Suspect]
     Active Substance: PALIVIZUMAB
     Indication: PREMATURE BABY
     Dosage: 15.0MG/KG UNKNOWN
     Route: 050
     Dates: start: 201905
  3. SYNAGIS [Suspect]
     Active Substance: PALIVIZUMAB
     Indication: HEART DISEASE CONGENITAL
     Dosage: 15.0MG/KG UNKNOWN
     Route: 050
     Dates: start: 201905

REACTIONS (1)
  - Death [Fatal]
